FAERS Safety Report 13205442 (Version 1)
Quarter: 2017Q1

REPORT INFORMATION
  Report Type: Spontaneous
  Country: US (occurrence: US)
  Receive Date: 20170208
  Receipt Date: 20170208
  Transmission Date: 20170428
  Serious: No
  Sender: FDA-Public Use
  Company Number: US-AMGEN-USASP2016123671

PATIENT
  Age: 45 Year

DRUGS (9)
  1. PARAPLATIN [Suspect]
     Active Substance: CARBOPLATIN
     Indication: HER-2 POSITIVE BREAST CANCER
  2. TAXOTERE [Suspect]
     Active Substance: DOCETAXEL
     Indication: HER-2 POSITIVE BREAST CANCER
  3. HERCEPTIN [Concomitant]
     Active Substance: TRASTUZUMAB
     Indication: INVASIVE LOBULAR BREAST CARCINOMA
     Dosage: UNK
  4. NEULASTA [Suspect]
     Active Substance: PEGFILGRASTIM
     Indication: FEBRILE NEUTROPENIA
     Dosage: UNK
     Route: 065
     Dates: start: 2016
  5. PERJETA [Concomitant]
     Active Substance: PERTUZUMAB
     Indication: INVASIVE LOBULAR BREAST CARCINOMA
     Dosage: UNK
  6. PARAPLATIN [Suspect]
     Active Substance: CARBOPLATIN
     Indication: INVASIVE LOBULAR BREAST CARCINOMA
     Dosage: UNK
     Route: 065
  7. PERJETA [Concomitant]
     Active Substance: PERTUZUMAB
     Indication: HER-2 POSITIVE BREAST CANCER
  8. HERCEPTIN [Concomitant]
     Active Substance: TRASTUZUMAB
     Indication: HER-2 POSITIVE BREAST CANCER
  9. TAXOTERE [Suspect]
     Active Substance: DOCETAXEL
     Indication: INVASIVE LOBULAR BREAST CARCINOMA
     Dosage: UNK
     Route: 065

REACTIONS (5)
  - Alopecia [Recovering/Resolving]
  - Feeling abnormal [Unknown]
  - Drug ineffective [Unknown]
  - Immune system disorder [Unknown]
  - Malaise [Unknown]

NARRATIVE: CASE EVENT DATE: 2016
